FAERS Safety Report 11336131 (Version 2)
Quarter: 2015Q3

REPORT INFORMATION
  Report Type: Report from Study
  Country: RU (occurrence: RU)
  Receive Date: 20150804
  Receipt Date: 20150825
  Transmission Date: 20151125
  Serious: Yes (Hospitalization, Other)
  Sender: FDA-Public Use
  Company Number: PHHY2015RU089963

PATIENT
  Age: 70 Year
  Sex: Female
  Weight: 87 kg

DRUGS (2)
  1. TASIGNA [Suspect]
     Active Substance: NILOTINIB
     Indication: CHRONIC MYELOID LEUKAEMIA
     Route: 065
     Dates: start: 20120701, end: 20150528
  2. NO TREATMENT RECEIVED [Suspect]
     Active Substance: UNSPECIFIED INGREDIENT
     Indication: PRODUCT USED FOR UNKNOWN INDICATION
     Route: 065

REACTIONS (9)
  - Pyrexia [Unknown]
  - Personality disorder [Not Recovered/Not Resolved]
  - Metastases to liver [Not Recovered/Not Resolved]
  - Adenocarcinoma gastric [Not Recovered/Not Resolved]
  - Second primary malignancy [Not Recovered/Not Resolved]
  - Terminal state [Unknown]
  - General physical health deterioration [Unknown]
  - Asthenia [Unknown]
  - Gastric ulcer [Unknown]

NARRATIVE: CASE EVENT DATE: 201504
